FAERS Safety Report 17274360 (Version 1)
Quarter: 2020Q1

REPORT INFORMATION
  Report Type: Spontaneous
  Country: FR (occurrence: FR)
  Receive Date: 20200115
  Receipt Date: 20200115
  Transmission Date: 20200409
  Serious: Yes (Other)
  Sender: FDA-Public Use
  Company Number: FR-NAPPMUNDI-GBR-2020-0074321

PATIENT
  Age: 53 Year
  Sex: Male
  Weight: 129 kg

DRUGS (9)
  1. NALOXONE [Concomitant]
     Active Substance: NALOXONE
  2. OXYNORMORO [Suspect]
     Active Substance: OXYCODONE HYDROCHLORIDE
     Indication: PAIN
     Dosage: 40 MG, DAILY
     Route: 048
     Dates: start: 20191201, end: 20191201
  3. ALPRAZOLAM MYLAN [Suspect]
     Active Substance: ALPRAZOLAM
     Indication: PRODUCT USED FOR UNKNOWN INDICATION
     Dosage: 1 DF, DAILY
     Route: 048
     Dates: end: 20191201
  4. DAFALGAN CODEINE [Concomitant]
     Active Substance: ACETAMINOPHEN\CODEINE PHOSPHATE
  5. OXYCODONE [Suspect]
     Active Substance: OXYCODONE
     Indication: PAIN
     Dosage: 60 MG, DAILY
     Route: 048
     Dates: start: 20191201, end: 20191201
  6. LOXEN [Concomitant]
  7. VENLAFAXINE [Concomitant]
     Active Substance: VENLAFAXINE HYDROCHLORIDE
  8. VANCOMYCINE SANDOZ [Suspect]
     Active Substance: VANCOMYCIN
     Indication: INFECTION
     Dosage: 1 G, DAILY
     Route: 041
     Dates: start: 20191201, end: 20191201
  9. CEFEPIME [Suspect]
     Active Substance: CEFEPIME HYDROCHLORIDE
     Indication: INFECTION
     Dosage: 6 G, Q24H
     Route: 041
     Dates: start: 20191201, end: 20191201

REACTIONS (3)
  - Hypercapnia [Recovered/Resolved]
  - Disturbance in attention [Recovering/Resolving]
  - Coma [Recovered/Resolved]

NARRATIVE: CASE EVENT DATE: 20191202
